FAERS Safety Report 11582915 (Version 1)
Quarter: 2015Q4

REPORT INFORMATION
  Report Type: Spontaneous
  Country: US (occurrence: US)
  Receive Date: 20151001
  Receipt Date: 20151001
  Transmission Date: 20160304
  Serious: No
  Sender: FDA-Public Use
  Company Number: US-ROCHE-689655

PATIENT
  Age: 37 Year
  Sex: Female

DRUGS (3)
  1. RIBAVIRIN. [Suspect]
     Active Substance: RIBAVIRIN
     Indication: HEPATITIS C
     Dosage: OTHER INDICATION :HEPATITIS B (HBV)
     Route: 065
  2. PROZAC [Concomitant]
     Active Substance: FLUOXETINE HYDROCHLORIDE
     Indication: DEPRESSION
     Route: 065
  3. PEGASYS [Suspect]
     Active Substance: PEGINTERFERON ALFA-2A
     Indication: HEPATITIS C
     Dosage: OTHER INDICATION: HEPATITIS B (HBV), FORM: PREFILLED SYRINGE
     Route: 065

REACTIONS (3)
  - Back pain [Not Recovered/Not Resolved]
  - Influenza like illness [Unknown]
  - Insomnia [Unknown]

NARRATIVE: CASE EVENT DATE: 20100224
